FAERS Safety Report 21601378 (Version 1)
Quarter: 2022Q4

REPORT INFORMATION
  Report Type: Report from Study
  Country: US (occurrence: US)
  Receive Date: 20221116
  Receipt Date: 20221116
  Transmission Date: 20230113
  Serious: No
  Sender: FDA-Public Use
  Company Number: US-002147023-NVSC2022US255732

PATIENT
  Sex: Female

DRUGS (1)
  1. MAYZENT [Suspect]
     Active Substance: SIPONIMOD
     Indication: Product used for unknown indication
     Dosage: 1 MG, QD
     Route: 048

REACTIONS (8)
  - Spinal pain [Unknown]
  - Osteoarthritis [Unknown]
  - Neck pain [Unknown]
  - Vision blurred [Unknown]
  - Joint swelling [Unknown]
  - Headache [Unknown]
  - Fatigue [Unknown]
  - Peripheral swelling [Unknown]
